FAERS Safety Report 6372499-5 (Version None)
Quarter: 2009Q3

REPORT INFORMATION
  Report Type: 
  Country: None (occurrence: None)
  Receive Date: 20090924
  Receipt Date: 20080827
  Transmission Date: 20100115
  Serious: No
  Sender: FDA-Public Use
  Company Number: US-ASTRAZENECA-2008UW17647

PATIENT
  Age: 66 Year
  Sex: Male
  Weight: 74.8 kg

DRUGS (2)
  1. SEROQUEL [Suspect]
     Indication: SEDATION
     Route: 048
  2. SEROQUEL [Suspect]
     Route: 048
     Dates: start: 20080826

REACTIONS (3)
  - DRY MOUTH [None]
  - INSOMNIA [None]
  - SPEECH DISORDER [None]
